FAERS Safety Report 4342244-3 (Version None)
Quarter: 2004Q2

REPORT INFORMATION
  Report Type: 
  Country: None (occurrence: None)
  Receive Date: 20040415
  Receipt Date: 20040330
  Transmission Date: 20050107
  Serious: Yes (Hospitalization)
  Sender: FDA-Public Use
  Company Number: 193503

PATIENT
  Age: 56 Year
  Sex: Female

DRUGS (15)
  1. AVONEX [Suspect]
     Indication: MULTIPLE SCLEROSIS
     Dosage: 30 MCG QW IM
     Route: 030
     Dates: start: 19950601
  2. ZANAFLEX [Concomitant]
  3. WELLBUTRIN [Concomitant]
  4. VICODIN [Concomitant]
  5. PREVACID [Concomitant]
  6. LOPRESSOR [Concomitant]
  7. LIPITOR [Concomitant]
  8. KLONOPIN [Concomitant]
  9. GLUCOPHAGE [Concomitant]
  10. GLIPIZIDE [Concomitant]
  11. GEODON [Concomitant]
  12. FLEXERIL [Concomitant]
  13. ESTRADIOL [Concomitant]
  14. CLARITIN [Concomitant]
  15. ATIVAN [Concomitant]

REACTIONS (6)
  - CHOLELITHIASIS [None]
  - CONDITION AGGRAVATED [None]
  - DEHYDRATION [None]
  - MEDICATION ERROR [None]
  - MULTIPLE SCLEROSIS [None]
  - PYREXIA [None]
